FAERS Safety Report 13022252 (Version 3)
Quarter: 2017Q1

REPORT INFORMATION
  Report Type: Spontaneous
  Country: DE (occurrence: DE)
  Receive Date: 20161213
  Receipt Date: 20170130
  Transmission Date: 20170428
  Serious: Yes (Hospitalization, Other)
  Sender: FDA-Public Use
  Company Number: PHHY2016DE166042

PATIENT
  Age: 1 Year
  Sex: Male
  Weight: 10.4 kg

DRUGS (3)
  1. ILARIS [Suspect]
     Active Substance: CANAKINUMAB
     Indication: JUVENILE IDIOPATHIC ARTHRITIS
     Dosage: 40 MG, (EVERY THREE WEEKS)
     Route: 058
     Dates: start: 20160222
  2. PREDNISOLONE. [Concomitant]
     Active Substance: PREDNISOLONE
     Indication: JUVENILE IDIOPATHIC ARTHRITIS
     Dosage: 5 MG, QD
     Route: 048
     Dates: start: 201602
  3. COLCHICINE. [Concomitant]
     Active Substance: COLCHICINE
     Indication: GENE MUTATION
     Dosage: 0.5 MG, QD
     Route: 048
     Dates: start: 20160624

REACTIONS (10)
  - Platelet count decreased [Unknown]
  - Blood triglycerides increased [Unknown]
  - Alanine aminotransferase increased [Unknown]
  - Aspartate aminotransferase increased [Unknown]
  - Histiocytosis haematophagic [Recovered/Resolved]
  - Blood lactate dehydrogenase increased [Unknown]
  - White blood cell count decreased [Unknown]
  - Fibrin D dimer increased [Unknown]
  - Serum ferritin increased [Unknown]
  - Drug administered to patient of inappropriate age [Unknown]

NARRATIVE: CASE EVENT DATE: 20161020
